FAERS Safety Report 7125879-4 (Version None)
Quarter: 2010Q4

REPORT INFORMATION
  Report Type: 
  Country: None (occurrence: None)
  Receive Date: 20101129
  Receipt Date: 20101014
  Transmission Date: 20110411
  Serious: No
  Sender: FDA-Public Use
  Company Number: US-MYLANLABS-2010S1018998

PATIENT
  Age: 59 Year
  Sex: Female

DRUGS (1)
  1. VALACYCLOVIR HYDROCHLORIDE [Suspect]
     Indication: HERPES OPHTHALMIC
     Route: 048
     Dates: start: 20100719, end: 20100914

REACTIONS (10)
  - CELLULITIS [None]
  - DRUG EFFECT DECREASED [None]
  - DRUG HYPERSENSITIVITY [None]
  - HERPES OPHTHALMIC [None]
  - HYPERSENSITIVITY [None]
  - IMPAIRED HEALING [None]
  - LACERATION [None]
  - PRODUCT SUBSTITUTION ISSUE [None]
  - RASH [None]
  - VULVOVAGINAL MYCOTIC INFECTION [None]
